FAERS Safety Report 20216824 (Version 1)
Quarter: 2021Q4

REPORT INFORMATION
  Report Type: Spontaneous
  Country: CA (occurrence: CA)
  Receive Date: 20211222
  Receipt Date: 20211222
  Transmission Date: 20220303
  Serious: Yes (Death)
  Sender: FDA-Public Use
  Company Number: CA-TEVA-2021-CA-1988334

PATIENT
  Age: 40 Year
  Sex: Male

DRUGS (21)
  1. PIPERACILLIN AND TAZOBACTAM [Suspect]
     Active Substance: PIPERACILLIN SODIUM\TAZOBACTAM SODIUM
     Indication: Cystic fibrosis lung
     Route: 065
  2. PIPERACILLIN AND TAZOBACTAM [Suspect]
     Active Substance: PIPERACILLIN SODIUM\TAZOBACTAM SODIUM
     Indication: Burkholderia cepacia complex infection
     Route: 042
  3. PIPERACILLIN AND TAZOBACTAM [Suspect]
     Active Substance: PIPERACILLIN SODIUM\TAZOBACTAM SODIUM
     Indication: Bronchiectasis
     Route: 065
  4. TOBRAMYCIN [Suspect]
     Active Substance: TOBRAMYCIN
     Indication: Cystic fibrosis lung
     Route: 065
  5. TOBRAMYCIN [Suspect]
     Active Substance: TOBRAMYCIN
     Indication: Burkholderia cepacia complex infection
     Route: 065
  6. TOBRAMYCIN [Suspect]
     Active Substance: TOBRAMYCIN
     Indication: Bronchiectasis
  7. CEFTAZIDIME [Suspect]
     Active Substance: CEFTAZIDIME
     Indication: Cystic fibrosis lung
     Route: 065
  8. CEFTAZIDIME [Suspect]
     Active Substance: CEFTAZIDIME
     Indication: Burkholderia cepacia complex infection
     Dosage: DOSAGE FORM: POWDER FOR SOLUTION
     Route: 065
  9. CEFTAZIDIME [Suspect]
     Active Substance: CEFTAZIDIME
     Indication: Bronchiectasis
     Route: 065
  10. COLISTIN [Suspect]
     Active Substance: COLISTIN
     Indication: Cystic fibrosis lung
     Route: 065
  11. COLISTIN [Suspect]
     Active Substance: COLISTIN
     Indication: Burkholderia cepacia complex infection
     Route: 065
  12. COLISTIN [Suspect]
     Active Substance: COLISTIN
     Indication: Bronchiectasis
     Route: 065
  13. MEROPENEM [Suspect]
     Active Substance: MEROPENEM
     Indication: Cystic fibrosis lung
     Route: 065
  14. MEROPENEM [Suspect]
     Active Substance: MEROPENEM
     Indication: Burkholderia cepacia complex infection
     Dosage: DOSAGE FORM: POWDER FOR SOLUTION INTRAVENOUS
     Route: 042
  15. MEROPENEM [Suspect]
     Active Substance: MEROPENEM
     Indication: Bronchiectasis
     Route: 065
  16. TELITHROMYCIN [Suspect]
     Active Substance: TELITHROMYCIN
     Indication: Cystic fibrosis lung
     Route: 048
  17. TELITHROMYCIN [Suspect]
     Active Substance: TELITHROMYCIN
     Indication: Burkholderia cepacia complex infection
  18. TELITHROMYCIN [Suspect]
     Active Substance: TELITHROMYCIN
     Indication: Bronchiectasis
  19. TOBRAMYCIN [Suspect]
     Active Substance: TOBRAMYCIN
     Indication: Cystic fibrosis lung
     Route: 042
  20. TOBRAMYCIN [Suspect]
     Active Substance: TOBRAMYCIN
     Indication: Burkholderia cepacia complex infection
  21. TOBRAMYCIN [Suspect]
     Active Substance: TOBRAMYCIN
     Indication: Bronchiectasis

REACTIONS (2)
  - Drug resistance [Fatal]
  - Therapeutic response decreased [Fatal]
